FAERS Safety Report 21325041 (Version 1)
Quarter: 2022Q3

REPORT INFORMATION
  Report Type: Spontaneous
  Country: FR (occurrence: FR)
  Receive Date: 20220912
  Receipt Date: 20220912
  Transmission Date: 20221027
  Serious: Yes (Other)
  Sender: FDA-Public Use
  Company Number: None

PATIENT
  Age: 98 Year
  Sex: Male

DRUGS (5)
  1. BISOPROLOL FUMARATE [Suspect]
     Active Substance: BISOPROLOL FUMARATE
     Indication: Hypertension
     Dosage: 1 DOSAGE FORM, 2 TOTAL,  1 CP OF 1.25 MG PER DAY ADMINISTERED TWICE
     Route: 048
     Dates: start: 20220331, end: 20220331
  2. AMLODIPINE BESYLATE [Suspect]
     Active Substance: AMLODIPINE BESYLATE
     Indication: Hypertension
     Dosage: 1 DOSAGE FORM, 2 TOTAL, 1 GEL OF 5 MG PER DAY ADMINISTERED TWICE
     Route: 048
     Dates: start: 20220331
  3. PAROXETINE [Concomitant]
     Active Substance: PAROXETINE
     Dosage: 1 DOSAGE FORM, QD SCORED FILM COATED TABLET
     Route: 048
  4. KARDEGIC [Concomitant]
     Active Substance: ASPIRIN DL-LYSINE
     Indication: Thrombosis prophylaxis
     Dosage: 1 DOSAGE FORM, 2 TOTAL, POWDER FOR DRINKABLE SOLUTION IN SACHET
     Route: 048
     Dates: start: 20220331
  5. MIRTAZAPINE CRISTERS [Concomitant]
     Dosage: 1 DOSAGE FORM, QD
     Route: 048

REACTIONS (2)
  - Bradycardia [Recovered/Resolved]
  - Medication error [Recovered/Resolved]

NARRATIVE: CASE EVENT DATE: 20220331
